FAERS Safety Report 16214260 (Version 2)
Quarter: 2019Q2

REPORT INFORMATION
  Report Type: Report from Study
  Country: US (occurrence: US)
  Receive Date: 20190418
  Receipt Date: 20190528
  Transmission Date: 20190711
  Serious: Yes (Hospitalization, Other)
  Sender: FDA-Public Use
  Company Number: US-MALLINCKRODT-T201902778

PATIENT
  Age: 36 Year
  Sex: Female

DRUGS (4)
  1. REPOSITORY CORTICOTROPIN INJECTION [Suspect]
     Active Substance: CORTICOTROPIN
     Indication: SYSTEMIC LUPUS ERYTHEMATOSUS
     Dosage: 80 UNITS/1ML, ONCE A DAY
     Route: 065
  2. REPOSITORY CORTICOTROPIN INJECTION [Suspect]
     Active Substance: CORTICOTROPIN
     Dosage: 80 UNITS / 1 ML, EVERY 3 DAY/ EVERY 72 HOURS
     Route: 058
     Dates: start: 2019
  3. REPOSITORY CORTICOTROPIN INJECTION [Suspect]
     Active Substance: CORTICOTROPIN
     Dosage: 80 UNITS / 1 ML, EVERY 3 DAY/ EVERY 72 HOURS
     Route: 058
     Dates: start: 20190227, end: 20190402
  4. LASIX [Suspect]
     Active Substance: FUROSEMIDE
     Indication: RENAL DISORDER
     Dosage: UNK
     Route: 065

REACTIONS (11)
  - Headache [Unknown]
  - Malaise [Unknown]
  - Pain [Unknown]
  - Pneumonia [Unknown]
  - Tremor [Unknown]
  - Pyrexia [Unknown]
  - Hypertension [Recovering/Resolving]
  - Blood potassium decreased [Recovering/Resolving]
  - Ear infection [Unknown]
  - Feeling abnormal [Unknown]
  - Drug ineffective [Unknown]

NARRATIVE: CASE EVENT DATE: 2019
